FAERS Safety Report 19415424 (Version 2)
Quarter: 2021Q2

REPORT INFORMATION
  Report Type: Spontaneous
  Country: DE (occurrence: DE)
  Receive Date: 20210615
  Receipt Date: 20210629
  Transmission Date: 20210717
  Serious: Yes (Other)
  Sender: FDA-Public Use
  Company Number: NVSC2021DE132870

PATIENT
  Age: 63 Year
  Sex: Male

DRUGS (1)
  1. AMOXI 750 ? 1 A PHARMA [Suspect]
     Active Substance: AMOXICILLIN
     Indication: BURNING SENSATION
     Dosage: 750 MG, 1?0?1
     Route: 065
     Dates: start: 20210519, end: 20210523

REACTIONS (4)
  - Dysgeusia [Recovered/Resolved]
  - Salivary hypersecretion [Not Recovered/Not Resolved]
  - Dysgeusia [Unknown]
  - Glossodynia [Not Recovered/Not Resolved]

NARRATIVE: CASE EVENT DATE: 2021
